FAERS Safety Report 7650190-2 (Version None)
Quarter: 2011Q3

REPORT INFORMATION
  Report Type: 
  Country: None (occurrence: None)
  Receive Date: 20110719
  Receipt Date: 20101213
  Transmission Date: 20111222
  Serious: Yes (Hospitalization, Other)
  Sender: FDA-Public Use
  Company Number: 163-21880-09111711

PATIENT
  Age: 77 Year
  Sex: Male
  Weight: 75.3 kg

DRUGS (12)
  1. AMICAR (AMINOCAPROIC ACID) (500 MILLIGRAM, TABLETS) [Concomitant]
  2. LAXATIVE (SENNOSIDE A+B) (UNKNOWN) [Concomitant]
  3. CRESTOR (ROSUVASTATIN) (40 MILLIGRAM, TABLETS) [Concomitant]
  4. AZACITIDINE [Suspect]
     Indication: ACUTE MYELOID LEUKAEMIA
     Dosage: 75 MG/M2, QD, SC
     Route: 058
     Dates: start: 20091104, end: 20091110
  5. BLOOD (BLOOD AND RELATED PRODUCTS) (UNKNOWN) [Concomitant]
  6. PROSCAR (FINASTERIDE) (5 MILLIGRAM, TABLETS) [Concomitant]
  7. REVLIMID [Suspect]
     Indication: ACUTE MYELOID LEUKAEMIA
     Dosage: 10 MG, QD X 21 DAYS, PO
     Route: 048
     Dates: start: 20091111, end: 20091124
  8. ALLOPURINOL (ALLOPURINOL) (300 MILLIGRAM, TABLETS) [Concomitant]
  9. DESYREL (TRAZODONE HYDROCHLORIDE) (100 MILLIGRAM, TABLETS) [Concomitant]
  10. METOPROLOL (METOPROLOL) (100 MILLIGRAM, TABLETS) [Concomitant]
  11. COLACE (DOCUSATE SODIUM) (250 MILLIGRAM, CAPSULES) [Concomitant]
  12. IMDUR (ISOSORBIDE MONONITRATE) (60 MILLIGRAM) [Concomitant]

REACTIONS (3)
  - FEBRILE NEUTROPENIA [None]
  - RASH [None]
  - PLATELET COUNT DECREASED [None]
